FAERS Safety Report 14477812 (Version 1)
Quarter: 2018Q1

REPORT INFORMATION
  Report Type: Report from Study
  Country: US (occurrence: US)
  Receive Date: 20180201
  Receipt Date: 20180201
  Transmission Date: 20180509
  Serious: No
  Sender: FDA-Public Use
  Company Number: US-EXELIXIS-CABO-17009135

PATIENT
  Sex: Female

DRUGS (10)
  1. CALCIUM VITAMIN D3 [Concomitant]
  2. CALCITRIOL. [Concomitant]
     Active Substance: CALCITRIOL
  3. LEVOTHROID [Concomitant]
     Active Substance: LEVOTHYROXINE SODIUM
  4. FENTORA [Concomitant]
     Active Substance: FENTANYL CITRATE
  5. AMLODIPINE [Concomitant]
     Active Substance: AMLODIPINE BESYLATE
  6. COMETRIQ [Suspect]
     Active Substance: CABOZANTINIB S-MALATE
     Indication: BREAST CANCER FEMALE
     Dosage: 60 MG ALTERNATING WITH 40MG QD
     Route: 048
     Dates: start: 20140121
  7. GABAPENTIN. [Concomitant]
     Active Substance: GABAPENTIN
  8. FENTANYL. [Concomitant]
     Active Substance: FENTANYL
  9. COMETRIQ [Suspect]
     Active Substance: CABOZANTINIB S-MALATE
     Indication: THYROID CANCER
     Dosage: 140 MG, QD
     Route: 048
     Dates: start: 20130928, end: 20131007
  10. MELOXICAM. [Concomitant]
     Active Substance: MELOXICAM

REACTIONS (2)
  - Tongue discomfort [Unknown]
  - Weight decreased [Unknown]
